FAERS Safety Report 9995825 (Version 2)
Quarter: 2014Q2

REPORT INFORMATION
  Report Type: Report from Study
  Country: CA (occurrence: CA)
  Receive Date: 20140311
  Receipt Date: 20140502
  Transmission Date: 20141212
  Serious: Yes (Other)
  Sender: FDA-Public Use
  Company Number: CA-BRISTOL-MYERS SQUIBB COMPANY-20355251

PATIENT
  Age: 79 Year
  Sex: Female

DRUGS (9)
  1. ORENCIA [Suspect]
     Indication: RHEUMATOID ARTHRITIS
     Dosage: 1 DF=500 UNIT NOS
     Route: 042
     Dates: start: 20121004
  2. GLUCOPHAGE [Concomitant]
  3. GLUCONORM [Concomitant]
  4. JANUVIA [Concomitant]
  5. CRESTOR [Concomitant]
  6. SYNTHROID [Concomitant]
  7. CALCIUM [Concomitant]
  8. VITAMIN D [Concomitant]
  9. ACLASTA [Concomitant]

REACTIONS (2)
  - Cataract [Unknown]
  - Hypoglycaemia [Unknown]
